FAERS Safety Report 8504570-3 (Version None)
Quarter: 2012Q3

REPORT INFORMATION
  Report Type: 
  Country: None (occurrence: None)
  Receive Date: 20120711
  Receipt Date: 20120702
  Transmission Date: 20120928
  Serious: Yes (Death, Hospitalization, Other)
  Sender: FDA-Public Use
  Company Number: JP-BRISTOL-MYERS SQUIBB COMPANY-15125164

PATIENT
  Age: 46 Year
  Sex: Female
  Weight: 42 kg

DRUGS (11)
  1. CYCLOPHOSPHAMIDE [Suspect]
     Indication: ACUTE LYMPHOCYTIC LEUKAEMIA
     Dosage: ALSO RECEIVED ON 27APR09 AND 27AUG09.900MG 1000MG:18AUG10,01DEC10, 900MG:14JAN11.
     Route: 042
     Dates: start: 20091002, end: 20110114
  2. ONCOVIN [Suspect]
     Indication: ACUTE LYMPHOCYTIC LEUKAEMIA
     Dosage: FORM: INJ; ALSO RECEIVED ON 27APR09 AND 27AUG09. 1.5MG:18AUG10,01DEC10,14JAN11.
     Route: 042
     Dates: start: 20091002, end: 20110114
  3. CYTARABINE [Suspect]
     Indication: ACUTE LYMPHOCYTIC LEUKAEMIA
     Dosage: FORM: INJ 40MG 5APR2010-11MAR2011
     Route: 037
     Dates: start: 20100208, end: 20110311
  4. METHOTREXATE [Suspect]
     Indication: ACUTE LYMPHOCYTIC LEUKAEMIA
     Dosage: FORM: INJ;ALSO ON 22APR09 AND 20MAY09. FROM05APR10-11MAR11
     Route: 037
     Dates: start: 20091001, end: 20110311
  5. NOVANTRONE [Suspect]
     Indication: ACUTE LYMPHOCYTIC LEUKAEMIA
     Dosage: FORM:INJ; INITIAL 27APR09(9MG)AND 27AUG09(10MG) 10MG:18AUG10,01DEC10, 9MG:14JAN11
     Route: 042
     Dates: start: 20091002, end: 20110114
  6. DORIPENEM MONOHYDRATE [Suspect]
     Route: 042
     Dates: start: 20100222, end: 20100224
  7. MAXIPIME [Suspect]
     Route: 042
     Dates: start: 20100213, end: 20100223
  8. NEUTROGIN [Concomitant]
     Dosage: FORM: INJ;ALSO ON 05MAY09-10MAY09 AND 04SEP09-10SEP09
     Route: 058
     Dates: start: 20091009, end: 20100301
  9. PREDNISOLONE SODIUM [Suspect]
     Indication: ACUTE LYMPHOCYTIC LEUKAEMIA
     Dosage: FORM: INJ;ALSO ON 22APR09,20MAY09 AND 17AUG09-18AUG09. 20MG:05APR10-11MAR11
     Route: 037
     Dates: start: 20091001, end: 20110311
  10. SPRYCEL [Suspect]
     Indication: ACUTE LYMPHOCYTIC LEUKAEMIA
     Dosage: 100MG/D:19MAR09-21FEB10,08MAR-21JUN10, 70MG/D: 22JUN-10AUG10, 100MG/D:11AUG10-29MAR11.
     Route: 048
     Dates: start: 20090319, end: 20110329
  11. PREDNISOLONE [Suspect]
     Indication: ACUTE LYMPHOCYTIC LEUKAEMIA
     Dosage: TAB;60MG:27APR9-1MAY,90MG:27AUG09-UK,90MG:18AG-22AG10,1DC-5DC10,14JN-18JN11.INJ:15MG:5APR10-11MAR11
     Route: 048
     Dates: start: 20091002, end: 20110311

REACTIONS (3)
  - NEOPLASM MALIGNANT [None]
  - GASTROINTESTINAL HAEMORRHAGE [None]
  - PSEUDOMEMBRANOUS COLITIS [None]
